FAERS Safety Report 12539441 (Version 2)
Quarter: 2016Q3

REPORT INFORMATION
  Report Type: Report from Study
  Country: MX (occurrence: MX)
  Receive Date: 20160708
  Receipt Date: 20160804
  Transmission Date: 20161109
  Serious: No
  Sender: FDA-Public Use
  Company Number: PHHY2016MX092243

PATIENT
  Sex: Female
  Weight: 84 kg

DRUGS (7)
  1. CALTRATE D                         /00944201/ [Concomitant]
     Dosage: 2 UNK, QD (FROM 13 YEARS AGO)
     Route: 048
  2. ZANIDIP [Concomitant]
     Active Substance: LERCANIDIPINE HYDROCHLORIDE
     Indication: HYPERTENSION
     Dosage: 1 IN THE MORNING AND 1/2 AT NIGHT
     Route: 065
     Dates: start: 2013
  3. EUTIROX [Concomitant]
     Active Substance: LEVOTHYROXINE SODIUM
     Dosage: 1 (DAILY ON AN EMPTY STOMACH)
     Route: 065
  4. ADALAT [Concomitant]
     Active Substance: NIFEDIPINE
     Indication: HYPERTENSION
     Dosage: 3 OT, UNK (EVENTUALLY)
     Route: 060
     Dates: start: 2013
  5. DIOVAN [Suspect]
     Active Substance: VALSARTAN
     Indication: HYPERTENSION
     Dosage: 2 DF, (ONE IN THE MORNING AND ONE IN THE AFTERNOON)
     Route: 065
  6. DIOVAN [Suspect]
     Active Substance: VALSARTAN
     Dosage: 3 DF, QD
     Route: 065
  7. EUTIROX [Concomitant]
     Active Substance: LEVOTHYROXINE SODIUM
     Indication: PRODUCT USED FOR UNKNOWN INDICATION
     Dosage: 100 OT, UNK
     Route: 065

REACTIONS (3)
  - Blood pressure inadequately controlled [Unknown]
  - Stress [Unknown]
  - Off label use [Unknown]
